FAERS Safety Report 8182393-5 (Version None)
Quarter: 2012Q1

REPORT INFORMATION
  Report Type: 
  Country: None (occurrence: None)
  Receive Date: 20120303
  Receipt Date: 20120221
  Transmission Date: 20120608
  Serious: No
  Sender: FDA-Public Use
  Company Number: US-B.I. PHARMACEUTICALS,INC./RIDGEFIELD-2012-BP-03243BP

PATIENT
  Age: 84 Year
  Sex: Male

DRUGS (5)
  1. PRADAXA [Suspect]
     Indication: ATRIAL FIBRILLATION
     Dosage: 300 MG
     Route: 048
     Dates: start: 20110501, end: 20110601
  2. PLAVIX [Concomitant]
  3. PRADAXA [Suspect]
     Dosage: 300 MG
     Route: 048
     Dates: start: 20120214
  4. ASPIRIN [Concomitant]
  5. TAMSULOSIN HCL [Concomitant]
     Indication: BENIGN PROSTATIC HYPERPLASIA

REACTIONS (2)
  - ABDOMINAL DISCOMFORT [None]
  - HYPERTENSION [None]
